FAERS Safety Report 7760179-0 (Version None)
Quarter: 2011Q3

REPORT INFORMATION
  Report Type: 
  Country: None (occurrence: None)
  Receive Date: 20110919
  Receipt Date: 20110909
  Transmission Date: 20111222
  Serious: Yes (Hospitalization)
  Sender: FDA-Public Use
  Company Number: FR-ASTRAZENECA-2011SE39920

PATIENT
  Age: 58 Year
  Sex: Male

DRUGS (4)
  1. ERGOTAMINE TARTRATE AND CAFFEINE [Suspect]
     Indication: MIGRAINE
     Route: 048
     Dates: start: 20091201
  2. SUMATRIPTAN SUCCINATE [Suspect]
     Indication: MIGRAINE
     Route: 058
     Dates: start: 20091201
  3. ZOLMITRIPTAN [Suspect]
     Indication: MIGRAINE
     Route: 048
     Dates: start: 20101201, end: 20101201
  4. INDOMETHACIN [Suspect]
     Indication: MIGRAINE
     Route: 054
     Dates: start: 20101212, end: 20101212

REACTIONS (1)
  - MIGRAINE [None]
